FAERS Safety Report 12803159 (Version 2)
Quarter: 2016Q4

REPORT INFORMATION
  Report Type: Spontaneous
  Country: US (occurrence: US)
  Receive Date: 20161003
  Receipt Date: 20161118
  Transmission Date: 20170207
  Serious: Yes (Other)
  Sender: FDA-Public Use
  Company Number: US-009507513-1610USA000141

PATIENT
  Age: 31 Year
  Sex: Female

DRUGS (7)
  1. GANIRELIX ACETATE INJECTION [Suspect]
     Active Substance: GANIRELIX ACETATE
     Indication: OVULATION INDUCTION
     Dosage: UNK
  2. GONAL-F [Suspect]
     Active Substance: FOLLITROPIN
     Indication: OVULATION INDUCTION
     Dosage: UNK
  3. MENOPUR [Suspect]
     Active Substance: FOLLICLE STIMULATING HORMONE BETA POLYPEPTIDE\LUTROPIN ALFA
     Indication: OVULATION INDUCTION
  4. FOLLISTIM [Suspect]
     Active Substance: FOLLITROPIN
     Indication: OVULATION INDUCTION
     Dosage: UNK
  5. CETROTIDE [Suspect]
     Active Substance: CETRORELIX ACETATE
     Indication: OVULATION INDUCTION
     Dosage: UNK
  6. LUPRON [Suspect]
     Active Substance: LEUPROLIDE ACETATE
     Indication: OVULATION INDUCTION
     Dosage: UNK
     Route: 058
  7. GONADOTROPIN, CHORIONIC [Suspect]
     Active Substance: CHORIOGONADOTROPIN ALFA
     Indication: OVULATION INDUCTION
     Dosage: UNK
     Route: 058

REACTIONS (1)
  - Ovarian hyperstimulation syndrome [Unknown]
